FAERS Safety Report 8817140 (Version 2)
Quarter: 2014Q2

REPORT INFORMATION
  Report Type: Spontaneous
  Country: None (occurrence: None)
  Receive Date: 20121002
  Receipt Date: 20140411
  Transmission Date: 20141212
  Serious: Yes (Hospitalization)
  Sender: FDA-Public Use
  Company Number: AUR-APL-2012-04209

PATIENT
  Age: 63 Year
  Sex: Male
  Weight: 67 kg

DRUGS (23)
  1. LEVETIRACETAM [Suspect]
     Indication: CONVULSION
     Dates: start: 20111201, end: 20111207
  2. LAMOTRIGINE (LAMOTRIGINE) [Suspect]
     Indication: CONVULSION
     Route: 048
     Dates: start: 20120201, end: 20120215
  3. IRINOTECAN [Suspect]
     Indication: BRAIN NEOPLASM MALIGNANT
     Dosage: LAST DOSE PRIOR TO SAE: 04/JAN/2012 (216 MG, 2 IN 1 WK), INTRAVENOUS
     Route: 042
     Dates: start: 20111026
  4. BEVACIZUMAB [Suspect]
     Indication: BRAIN NEOPLASM MALIGNANT
     Dates: start: 20110831
  5. TEMOZOLOMIDE [Suspect]
     Indication: BRAIN NEOPLASM MALIGNANT
     Route: 048
  6. DEXAMETHASONE (DEXAMETHASONE) [Concomitant]
  7. SIMVASTATIN (SIMVASTATIN) [Concomitant]
  8. EUTHYROX (LEVOTHYROXINE SODIUM) [Concomitant]
  9. LISINOPRIL (LISINOPRIL) [Concomitant]
  10. HYDROCHLOROTHIAZIDE (HYDROCHLOROTHIAZIDE) [Concomitant]
  11. FELODIPINE (FELODIPINE) [Concomitant]
  12. MAGNOGENE (MAGNESIUM CHLORIDE ANHYDROUS) [Concomitant]
  13. CITALOPRAM (CITALOPRAM) [Concomitant]
  14. ZOPICLONE (ZOPICLONE) [Concomitant]
  15. METOCLOPRAMIDE (METOCLOPRAMIDE) [Concomitant]
  16. LAXOBERAL (SODIUM PICOSULFATE) [Concomitant]
  17. NEXIUM (ESOMEPRAZOLE MAGNESIUM) [Concomitant]
  18. MOVICOL [Concomitant]
  19. RIVOTRIL (CLONAZEPAM) [Concomitant]
  20. MIRTAZAPINE (MIRTAZAPINE) [Concomitant]
  21. TAVOR (LORAZEPAM) [Concomitant]
  22. REPAGLINIDE (REPAGLINIDE) [Concomitant]
  23. CLOPIDGREL (CLOPIDOGREL) [Concomitant]

REACTIONS (1)
  - Convulsion [None]
